FAERS Safety Report 24688460 (Version 1)
Quarter: 2024Q4

REPORT INFORMATION
  Report Type: Spontaneous
  Country: NZ (occurrence: NZ)
  Receive Date: 20241202
  Receipt Date: 20241202
  Transmission Date: 20250114
  Serious: Yes (Other)
  Sender: CURRAX PHARMACEUTICALS
  Company Number: NZ-NALPROPION PHARMACEUTICALS INC.-NZ-2024CUR005029

PATIENT
  Age: 36 Year
  Sex: Female
  Weight: 73 kg

DRUGS (1)
  1. CONTRAVE [Suspect]
     Active Substance: BUPROPION HYDROCHLORIDE\NALTREXONE HYDROCHLORIDE
     Indication: Product used for unknown indication
     Dosage: 1 TABLET, 1 DOSE IN TOTAL
     Route: 065
     Dates: start: 20241119, end: 20241119

REACTIONS (5)
  - Dyspnoea at rest [Recovering/Resolving]
  - Brain fog [Recovering/Resolving]
  - Disorientation [Recovering/Resolving]
  - Nausea [Recovering/Resolving]
  - Vomiting [Recovering/Resolving]

NARRATIVE: CASE EVENT DATE: 20241119
